FAERS Safety Report 6981679-7 (Version None)
Quarter: 2010Q3

REPORT INFORMATION
  Report Type: 
  Country: None (occurrence: None)
  Receive Date: 20100914
  Receipt Date: 20090930
  Transmission Date: 20110219
  Serious: No
  Sender: FDA-Public Use
  Company Number: US-PFIZER INC-2009253090

PATIENT
  Age: 51 Year
  Sex: Female
  Weight: 54.422 kg

DRUGS (1)
  1. LYRICA [Suspect]
     Indication: PAIN
     Dosage: UNK
     Dates: start: 20090804

REACTIONS (3)
  - BALANCE DISORDER [None]
  - DIZZINESS [None]
  - VISION BLURRED [None]
